FAERS Safety Report 9420184 (Version 1)
Quarter: 2013Q3

REPORT INFORMATION
  Report Type: Spontaneous
  Country: US (occurrence: None)
  Receive Date: 20130723
  Receipt Date: 20130723
  Transmission Date: 20140515
  Serious: Yes (Hospitalization)
  Sender: FDA-Public Use
  Company Number: None

PATIENT
  Age: 68 Year
  Sex: Female
  Weight: 133.9 kg

DRUGS (2)
  1. FLUDARABINE PHOSPHATE [Suspect]
     Dates: end: 20121210
  2. RITUXIMAB (MOAB C2B8 ANTI CD20, CHIMERIC) [Suspect]
     Dates: end: 20121210

REACTIONS (1)
  - Angina pectoris [None]
